FAERS Safety Report 10227410 (Version 3)
Quarter: 2014Q3

REPORT INFORMATION
  Report Type: Spontaneous
  Country: US (occurrence: US)
  Receive Date: 20140610
  Receipt Date: 20140715
  Transmission Date: 20150326
  Serious: No
  Sender: FDA-Public Use
  Company Number: US-PFIZER INC-2014157442

PATIENT
  Age: 59 Year
  Sex: Female
  Weight: 68.48 kg

DRUGS (3)
  1. DEPO-MEDROL [Suspect]
     Active Substance: METHYLPREDNISOLONE ACETATE
     Dosage: 40 MG, UNK
     Dates: start: 20140404, end: 20140404
  2. DEPO-MEDROL [Suspect]
     Active Substance: METHYLPREDNISOLONE ACETATE
     Dosage: 40 MG, UNK
     Dates: start: 20140424, end: 20140424
  3. DEPO-MEDROL [Suspect]
     Active Substance: METHYLPREDNISOLONE ACETATE
     Indication: NECK PAIN
     Dosage: UNK MG, UNK
     Route: 008
     Dates: start: 20140324

REACTIONS (5)
  - Fatigue [Unknown]
  - Malaise [Unknown]
  - Headache [Unknown]
  - Incorrect route of drug administration [Unknown]
  - Somnolence [Unknown]

NARRATIVE: CASE EVENT DATE: 2014
